FAERS Safety Report 14907631 (Version 1)
Quarter: 2018Q2

REPORT INFORMATION
  Report Type: Spontaneous
  Country: FR (occurrence: FR)
  Receive Date: 20180517
  Receipt Date: 20180517
  Transmission Date: 20180711
  Serious: Yes (Other)
  Sender: FDA-Public Use
  Company Number: FR-MERCK KGAA-2047983

PATIENT
  Age: 50 Year
  Sex: Female

DRUGS (1)
  1. NOVOTHYROX [Suspect]
     Active Substance: LEVOTHYROXINE SODIUM
     Indication: HYPOTHYROIDISM

REACTIONS (16)
  - Pain in extremity [None]
  - Premature ageing [None]
  - Muscle spasms [Recovered/Resolved]
  - Decreased interest [None]
  - Weight increased [None]
  - Headache [None]
  - Social avoidant behaviour [None]
  - Depression [None]
  - Fatigue [None]
  - Psychomotor skills impaired [Not Recovered/Not Resolved]
  - Migraine [Not Recovered/Not Resolved]
  - Insomnia [None]
  - Loss of libido [None]
  - Mental impairment [None]
  - Stress [None]
  - Loss of personal independence in daily activities [None]

NARRATIVE: CASE EVENT DATE: 201707
